FAERS Safety Report 8314848-4 (Version None)
Quarter: 2012Q2

REPORT INFORMATION
  Report Type: 
  Country: None (occurrence: None)
  Receive Date: 20120426
  Receipt Date: 20120416
  Transmission Date: 20120825
  Serious: Yes (Hospitalization)
  Sender: FDA-Public Use
  Company Number: CA-JNJFOC-20120407156

PATIENT
  Sex: Female
  Weight: 118.8 kg

DRUGS (7)
  1. PREVACID [Concomitant]
     Route: 065
  2. AVELOX [Suspect]
     Indication: RASH
     Route: 065
  3. REMICADE [Suspect]
     Indication: RHEUMATOID ARTHRITIS
     Route: 042
     Dates: start: 20071018
  4. TYLENOL W/ CODEINE NO. 4 [Concomitant]
     Route: 065
  5. UNKNOWN MEDICATION [Suspect]
     Indication: PRODUCT USED FOR UNKNOWN INDICATION
     Route: 065
  6. DIOVAN [Concomitant]
     Route: 065
  7. PREDNISONE TAB [Concomitant]
     Route: 065

REACTIONS (7)
  - INFLUENZA [None]
  - SINUSITIS [None]
  - GASTROINTESTINAL DISORDER [None]
  - SEROTONIN SYNDROME [None]
  - DIARRHOEA [None]
  - RASH [None]
  - PAIN [None]
